FAERS Safety Report 7766059-9 (Version None)
Quarter: 2011Q3

REPORT INFORMATION
  Report Type: 
  Country: None (occurrence: None)
  Receive Date: 20110921
  Receipt Date: 20110912
  Transmission Date: 20111222
  Serious: Yes (Hospitalization)
  Sender: FDA-Public Use
  Company Number: US-ASTRAZENECA-2011SE43418

PATIENT
  Age: 53 Year
  Sex: Female
  Weight: 86.2 kg

DRUGS (8)
  1. SAPHRIS [Concomitant]
  2. SEROQUEL XR [Suspect]
     Indication: BIPOLAR DISORDER
     Route: 048
     Dates: start: 20080101
  3. OXYCODONE HCL [Suspect]
     Route: 065
  4. NEXIUM [Concomitant]
  5. LORTAB [Concomitant]
  6. XANAX [Concomitant]
  7. SEROQUEL XR [Suspect]
     Route: 048
     Dates: start: 20080216
  8. CYMBALTA [Suspect]
     Route: 065

REACTIONS (8)
  - EXPRESSIVE LANGUAGE DISORDER [None]
  - MEMORY IMPAIRMENT [None]
  - AMNESIA [None]
  - AGNOSIA [None]
  - DYSPHEMIA [None]
  - TREMOR [None]
  - ACTIVITIES OF DAILY LIVING IMPAIRED [None]
  - APHASIA [None]
